FAERS Safety Report 6964882-1 (Version None)
Quarter: 2010Q3

REPORT INFORMATION
  Report Type: 
  Country: None (occurrence: None)
  Receive Date: 20100903
  Receipt Date: 20100823
  Transmission Date: 20110219
  Serious: Yes (Other)
  Sender: FDA-Public Use
  Company Number: TR-ELI_LILLY_AND_COMPANY-TR201007007191

PATIENT
  Sex: Female

DRUGS (4)
  1. HUMULIN R [Suspect]
     Indication: GESTATIONAL DIABETES
     Dosage: 14 U, 3/D
     Route: 058
     Dates: start: 20100611, end: 20100809
  2. ELEVIT [Concomitant]
     Dosage: UNK UNK, DAILY (1/D)
     Route: 048
     Dates: end: 20100809
  3. ECOPIRIN [Concomitant]
     Dosage: UNK UNK, DAILY (1/D)
     Route: 048
     Dates: end: 20100809
  4. PROGESTIN INJ [Concomitant]
     Indication: HAEMORRHAGE
     Dosage: UNK UNK, 3/D
     Route: 048

REACTIONS (3)
  - ABORTION SPONTANEOUS [None]
  - DRUG EXPOSURE DURING PREGNANCY [None]
  - PREMATURE RUPTURE OF MEMBRANES [None]
